FAERS Safety Report 17099302 (Version 1)
Quarter: 2019Q4

REPORT INFORMATION
  Report Type: Spontaneous
  Country: US (occurrence: US)
  Receive Date: 20191202
  Receipt Date: 20191202
  Transmission Date: 20200122
  Serious: No
  Sender: FDA-Public Use
  Company Number: US-PFIZER INC-2019514560

PATIENT
  Age: 66 Year
  Sex: Male
  Weight: 107.5 kg

DRUGS (1)
  1. AMIODARONE HCL [Suspect]
     Active Substance: AMIODARONE HYDROCHLORIDE
     Indication: ATRIAL FIBRILLATION
     Dosage: 200 MG, 2X/DAY

REACTIONS (3)
  - Dyspnoea [Unknown]
  - Off label use [Unknown]
  - Drug effective for unapproved indication [Unknown]
